FAERS Safety Report 6306900-X (Version None)
Quarter: 2009Q3

REPORT INFORMATION
  Report Type: 
  Country: None (occurrence: None)
  Receive Date: 20090811
  Receipt Date: 20090811
  Transmission Date: 20100115
  Serious: Yes (Other)
  Sender: FDA-Public Use
  Company Number: None

PATIENT
  Age: 60 Year
  Sex: Male
  Weight: 191.4179 kg

DRUGS (2)
  1. VENOFER [Suspect]
     Indication: BLOOD IRON DECREASED
     Dates: start: 20090805, end: 20090807
  2. NORMAL SALINE IVPB 0.9% BAXTER [Suspect]

REACTIONS (2)
  - DYSPNOEA [None]
  - RASH [None]
